FAERS Safety Report 9991776 (Version 2)
Quarter: 2014Q1

REPORT INFORMATION
  Report Type: Spontaneous
  Country: US (occurrence: US)
  Receive Date: 20140310
  Receipt Date: 20140310
  Transmission Date: 20141002
  Serious: No
  Sender: FDA-Public Use
  Company Number: US-ASTRAZENECA-2007UW03420

PATIENT
  Age: 70 Year
  Sex: Female
  Weight: 68 kg

DRUGS (6)
  1. RHINOCORT [Suspect]
     Route: 045
  2. NEXIUM [Suspect]
     Indication: DYSPEPSIA
     Route: 048
  3. NEXIUM [Suspect]
     Indication: OESOPHAGEAL DISORDER
     Route: 048
  4. ZYRTEC [Concomitant]
  5. NIACIN [Concomitant]
  6. VITAMIN C [Concomitant]

REACTIONS (4)
  - Dyspepsia [Unknown]
  - Oesophageal disorder [Unknown]
  - Constipation [Unknown]
  - Intentional drug misuse [Unknown]
